FAERS Safety Report 4490041-0 (Version None)
Quarter: 2004Q4

REPORT INFORMATION
  Report Type: 
  Country: None (occurrence: None)
  Receive Date: 20041027
  Receipt Date: 20041012
  Transmission Date: 20050328
  Serious: Yes (Hospitalization)
  Sender: FDA-Public Use
  Company Number: 2004-BP-09755RO

PATIENT
  Age: 55 Year
  Sex: Male

DRUGS (16)
  1. DEXAMETHASONE [Suspect]
     Indication: MULTIPLE MYELOMA
     Dosage: CYCLIC: 40 MG/DAY, PO
     Route: 048
     Dates: start: 20030306, end: 20030309
  2. GENASENSE [Suspect]
     Indication: MULTIPLE MYELOMA
     Dosage: CYCLIC:  7 MG/KG/DAY, IV
     Route: 042
     Dates: start: 20030303, end: 20030310
  3. ALBUTEROL [Concomitant]
  4. CITALOPRAM [Concomitant]
  5. GEMFIBROZIL [Concomitant]
  6. TRIAMCINOLONE ACETONIDE [Concomitant]
  7. HYDROCHLOROTHIAZIDE [Concomitant]
  8. EPOETIN ALFA (EPOETIN ALFA) [Concomitant]
  9. PROCHLORPERAZINE [Concomitant]
  10. ACETAMINOPHEN W/CODEINE (GALENIC / PARACETAMOL/CODEINE/) [Concomitant]
  11. ACETAMINOPHEN [Concomitant]
  12. LOPERAMIDE HCL [Concomitant]
  13. PAMIDRONATE DISODIUM [Concomitant]
  14. TRIMETHOPRIM W/SULFAMETHOXAZOLE (BACTRIM) [Concomitant]
  15. LEVOFLOXACIN [Concomitant]
  16. RANITIDINE [Concomitant]

REACTIONS (4)
  - DEHYDRATION [None]
  - MUSCULOSKELETAL CHEST PAIN [None]
  - ORAL CANDIDIASIS [None]
  - RENAL FAILURE ACUTE [None]
